FAERS Safety Report 23445903 (Version 2)
Quarter: 2024Q1

REPORT INFORMATION
  Report Type: Spontaneous
  Country: US (occurrence: US)
  Receive Date: 20240126
  Receipt Date: 20240201
  Transmission Date: 20240409
  Serious: Yes (Life-Threatening, Other)
  Sender: FDA-Public Use
  Company Number: US-ABBVIE-199911637

PATIENT
  Age: 30 Year
  Sex: Female

DRUGS (2)
  1. BOTOX [Suspect]
     Active Substance: ONABOTULINUMTOXINA
     Indication: Muscle spasticity
     Dosage: TIME INTERVAL: AS NECESSARY: 8 X 12.5 UNITS
     Route: 030
  2. BOTOX [Suspect]
     Active Substance: ONABOTULINUMTOXINA
     Indication: Muscle spasticity
     Dosage: TIME INTERVAL: AS NECESSARY: 100 IU
     Route: 030

REACTIONS (6)
  - Respiratory arrest [Recovered/Resolved]
  - Syncope [Unknown]
  - Catatonia [Unknown]
  - Hypopnoea [Unknown]
  - Muscular weakness [Unknown]
  - Eyelid ptosis [Unknown]
